FAERS Safety Report 23024373 (Version 1)
Quarter: 2023Q4

REPORT INFORMATION
  Report Type: Spontaneous
  Country: CA (occurrence: CA)
  Receive Date: 20231004
  Receipt Date: 20231004
  Transmission Date: 20240110
  Serious: Yes (Hospitalization, Other)
  Sender: FDA-Public Use
  Company Number: CA-AUROBINDO-AUR-APL-2023-060981

PATIENT
  Age: 47 Year
  Sex: Male

DRUGS (2)
  1. TERIFLUNOMIDE [Suspect]
     Active Substance: TERIFLUNOMIDE
     Indication: Relapsing-remitting multiple sclerosis
     Dosage: 14 MILLIGRAM
     Route: 048
  2. VENLAFAXINE [Suspect]
     Active Substance: VENLAFAXINE HYDROCHLORIDE
     Indication: Product used for unknown indication
     Dosage: UNK
     Route: 065

REACTIONS (11)
  - Diplopia [Unknown]
  - Diarrhoea [Unknown]
  - Dizziness [Unknown]
  - Hemihypoaesthesia [Unknown]
  - Memory impairment [Unknown]
  - Motor dysfunction [Unknown]
  - Multiple sclerosis relapse [Unknown]
  - Nausea [Unknown]
  - Pain [Unknown]
  - Visual impairment [Unknown]
  - Drug ineffective [Unknown]
